FAERS Safety Report 9126807 (Version 1)
Quarter: 2013Q1

REPORT INFORMATION
  Report Type: Spontaneous
  Country: US (occurrence: US)
  Receive Date: 20130228
  Receipt Date: 20130228
  Transmission Date: 20140127
  Serious: No
  Sender: FDA-Public Use
  Company Number: US-TARO-2012P1011970

PATIENT
  Age: 35 Year
  Sex: Female
  Weight: 74.84 kg

DRUGS (9)
  1. LAMOTRIGINE [Suspect]
     Route: 048
     Dates: start: 20120203
  2. SOLEXA [Concomitant]
  3. SEROQUEL [Concomitant]
  4. MICROGESTIN [Concomitant]
     Route: 048
  5. SINGULAIR [Concomitant]
  6. WELLBUTRIN [Concomitant]
  7. CLARITIN [Concomitant]
  8. INTUNIV [Suspect]
     Dates: start: 20120127, end: 20120202
  9. INTUNIV [Suspect]
     Dates: start: 20120203, end: 20120223

REACTIONS (3)
  - Dyspnoea [Recovered/Resolved]
  - Nasal congestion [Not Recovered/Not Resolved]
  - Hypersensitivity [Not Recovered/Not Resolved]
